FAERS Safety Report 9454628 (Version 2)
Quarter: 2013Q4

REPORT INFORMATION
  Report Type: Spontaneous
  Country: FR (occurrence: FR)
  Receive Date: 20130812
  Receipt Date: 20131223
  Transmission Date: 20140711
  Serious: Yes (Hospitalization)
  Sender: FDA-Public Use
  Company Number: FR-TEVA-422609ISR

PATIENT
  Age: 88 Year
  Sex: Male

DRUGS (6)
  1. FUROSEMIDE TEVA 40 MG, SCORED TABLET [Suspect]
     Indication: OEDEMA
     Dosage: 2 DOSAGE FORMS DAILY;
     Route: 048
     Dates: start: 201305, end: 20130614
  2. BISOPROLOL [Concomitant]
     Dosage: 1.25 MILLIGRAM DAILY;
     Route: 048
  3. CANDESARTAN [Concomitant]
     Dosage: 8 MILLIGRAM DAILY;
     Route: 048
  4. DIFFU K, CAPSULE [Concomitant]
     Dosage: 2 DOSAGE FORMS DAILY;
     Route: 048
  5. ESOMEPRAZOLE [Concomitant]
     Dosage: 40 MILLIGRAM DAILY;
     Route: 048
  6. MACROGOL 4000 [Concomitant]
     Dosage: 10 MILLIGRAM DAILY;
     Route: 048

REACTIONS (7)
  - Oedema peripheral [Unknown]
  - Localised oedema [Unknown]
  - Pulmonary oedema [Unknown]
  - Somnolence [Unknown]
  - Mobility decreased [Unknown]
  - Renal disorder [Unknown]
  - Gait disturbance [Unknown]
